FAERS Safety Report 20658588 (Version 1)
Quarter: 2022Q1

REPORT INFORMATION
  Report Type: Spontaneous
  Country: US (occurrence: None)
  Receive Date: 20220330
  Receipt Date: 20220330
  Transmission Date: 20220423
  Serious: Yes (Other)
  Sender: FDA-Public Use
  Company Number: None

PATIENT
  Age: 81 Year
  Sex: Male
  Weight: 60.75 kg

DRUGS (1)
  1. ERLEADA [Suspect]
     Active Substance: APALUTAMIDE
     Indication: Drug therapy
     Route: 048
     Dates: start: 20211125, end: 20220105

REACTIONS (4)
  - Pain in extremity [None]
  - Hypoaesthesia [None]
  - Hypoaesthesia [None]
  - Sensory disturbance [None]
